FAERS Safety Report 17623034 (Version 1)
Quarter: 2020Q2

REPORT INFORMATION
  Report Type: Spontaneous
  Country: US (occurrence: US)
  Receive Date: 20200403
  Receipt Date: 20200403
  Transmission Date: 20200713
  Serious: Yes (Other)
  Sender: FDA-Public Use
  Company Number: None

PATIENT
  Age: 20 Year
  Sex: Female
  Weight: 60 kg

DRUGS (2)
  1. LURASIDONE [Concomitant]
     Active Substance: LURASIDONE
     Dates: start: 20200323
  2. CRIZANLIZUMAB [Suspect]
     Active Substance: CRIZANLIZUMAB
     Indication: SICKLE CELL DISEASE
     Dosage: ?          OTHER FREQUENCY:MONTHLY;?
     Route: 041
     Dates: start: 20200326

REACTIONS (3)
  - Back pain [None]
  - Pyrexia [None]
  - Pain in extremity [None]

NARRATIVE: CASE EVENT DATE: 20200402
